FAERS Safety Report 5034894-6 (Version None)
Quarter: 2006Q2

REPORT INFORMATION
  Report Type: 
  Country: None (occurrence: None)
  Receive Date: 20060623
  Receipt Date: 20060623
  Transmission Date: 20061013
  Serious: Yes (Disabling)
  Sender: FDA-Public Use
  Company Number: None

PATIENT
  Age: 65 Year
  Sex: Male
  Weight: 106.6 kg

DRUGS (1)
  1. FLUTAMIDE [Suspect]
     Indication: PROSTATE CANCER
     Dosage: 250MG    Q8G    PO

REACTIONS (4)
  - ADVERSE DRUG REACTION [None]
  - DIARRHOEA [None]
  - DRUG HYPERSENSITIVITY [None]
  - DRUG INTOLERANCE [None]
